FAERS Safety Report 25497619 (Version 1)
Quarter: 2025Q3

REPORT INFORMATION
  Report Type: Report from Study
  Country: CA (occurrence: CA)
  Receive Date: 20250701
  Receipt Date: 20250701
  Transmission Date: 20251021
  Serious: Yes (Other)
  Sender: CELLTRION
  Company Number: CA-CELLTRION INC.-2025CA020565

PATIENT

DRUGS (1)
  1. ADALIMUMAB [Suspect]
     Active Substance: ADALIMUMAB
     Indication: Colitis ulcerative
     Dosage: 40.0 MILLIGRAM, 1 EVERY 1 WEEKS

REACTIONS (3)
  - Parathyroid tumour benign [Unknown]
  - Constipation [Unknown]
  - Off label use [Unknown]
